FAERS Safety Report 13094567 (Version 1)
Quarter: 2017Q1

REPORT INFORMATION
  Report Type: Not Available
  Country: FR (occurrence: FR)
  Receive Date: 20170106
  Receipt Date: 20170106
  Transmission Date: 20170428
  Serious: Yes (Hospitalization)
  Sender: FDA-Public Use
  Company Number: FR-PURDUE PHARMA-GBR-2016-0042671

PATIENT
  Age: 54 Year
  Sex: Female

DRUGS (11)
  1. DESLORATADINE. [Suspect]
     Active Substance: DESLORATADINE
     Indication: SUICIDE ATTEMPT
     Dosage: 7 DF, DAILY [5 MG STRENGTH]
     Route: 048
     Dates: start: 20160828, end: 20160828
  2. MOTILIUM [Concomitant]
     Active Substance: DOMPERIDONE
     Dosage: 3 TABLET, DAILY
  3. LORMETAZEPAM [Suspect]
     Active Substance: LORMETAZEPAM
     Indication: SUICIDE ATTEMPT
     Dosage: 14 DF, DAILY [2 MG STRENGTH]
     Route: 048
     Dates: start: 20160828, end: 20160828
  4. NOCTAMIDE [Concomitant]
     Active Substance: LORMETAZEPAM
     Dosage: 2 TABLET, NOCTE
  5. TERCIAN                            /00759301/ [Concomitant]
     Active Substance: CYAMEMAZINE
     Dosage: 1 TABLET, NOCTE
  6. INEXIUM                            /01479302/ [Concomitant]
     Active Substance: ESOMEPRAZOLE MAGNESIUM
     Dosage: 1 TABLET, NOCTE
  7. OXYCONTIN [Suspect]
     Active Substance: OXYCODONE HYDROCHLORIDE
     Indication: SUICIDE ATTEMPT
     Dosage: 46 DF, DAILY [20 MG STRENGTH]
     Route: 048
     Dates: start: 20160828, end: 20160828
  8. XANAX [Concomitant]
     Active Substance: ALPRAZOLAM
     Dosage: 1 TABLET, NOCTE
  9. ALPRAZOLAM. [Suspect]
     Active Substance: ALPRAZOLAM
     Indication: SUICIDE ATTEMPT
     Dosage: 20 DF, DAILY [0,5 MG STRENGTH]
     Route: 048
     Dates: start: 20160828, end: 20160828
  10. DEROXAT [Concomitant]
     Active Substance: PAROXETINE HYDROCHLORIDE
     Dosage: 2 TABLET, AM
  11. GAVISCON                           /01405501/ [Concomitant]
     Active Substance: SODIUM ALGINATE\SODIUM BICARBONATE
     Dosage: UNK, PRN

REACTIONS (4)
  - Respiratory acidosis [Recovered/Resolved]
  - Poisoning deliberate [Recovered/Resolved]
  - Respiratory depression [Recovered/Resolved]
  - Coma [Recovered/Resolved]

NARRATIVE: CASE EVENT DATE: 20160828
